FAERS Safety Report 6177201-8 (Version None)
Quarter: 2009Q2

REPORT INFORMATION
  Report Type: 
  Country: None (occurrence: None)
  Receive Date: 20090430
  Receipt Date: 20090430
  Transmission Date: 20091009
  Serious: Yes (Other)
  Sender: FDA-Public Use
  Company Number: None

PATIENT
  Sex: Female

DRUGS (15)
  1. FOSAMAX [Suspect]
     Indication: COELIAC DISEASE
     Dosage: 3-5 YEARS OF USE
  2. FOSAMAX [Suspect]
     Indication: OSTEOPENIA
     Dosage: 3-5 YEARS OF USE
  3. FOSAMAX [Suspect]
     Indication: RHEUMATOID ARTHRITIS
     Dosage: 3-5 YEARS OF USE
  4. CHROMAGEN MULTIVITAMIN ONE A DAY [Concomitant]
  5. METHOTREXATE [Concomitant]
  6. FOLIC ACID [Concomitant]
  7. NAPROSYN [Concomitant]
  8. OMEPRAZOLE [Concomitant]
  9. CALCIUM [Concomitant]
  10. FLAX SEED [Concomitant]
  11. FISH OIL [Concomitant]
  12. SUPER B VITS [Concomitant]
  13. MECLIZINE [Concomitant]
  14. ASPIRIN [Concomitant]
  15. FLUOXETINE HCL [Concomitant]

REACTIONS (2)
  - FEMUR FRACTURE [None]
  - STRESS FRACTURE [None]
